FAERS Safety Report 8032021-4 (Version None)
Quarter: 2012Q1

REPORT INFORMATION
  Report Type: 
  Country: None (occurrence: None)
  Receive Date: 20120109
  Receipt Date: 20110531
  Transmission Date: 20120608
  Serious: No
  Sender: FDA-Public Use
  Company Number: US-ABBOTT-10P-163-0640645-00

PATIENT
  Sex: Female

DRUGS (2)
  1. VICODIN [Suspect]
     Indication: PAIN
     Dates: start: 20090101, end: 20090101
  2. VICODIN [Suspect]
     Indication: PRODUCT USED FOR UNKNOWN INDICATION

REACTIONS (1)
  - PRURITUS [None]
